FAERS Safety Report 5582137-7 (Version None)
Quarter: 2007Q4

REPORT INFORMATION
  Report Type: 
  Country: None (occurrence: None)
  Receive Date: 20071130
  Receipt Date: 20070906
  Transmission Date: 20080405
  Serious: No
  Sender: FDA-Public Use
  Company Number: US200708002589

PATIENT
  Age: 57 Year
  Sex: Female
  Weight: 70.3 kg

DRUGS (6)
  1. BYETTA [Suspect]
     Indication: TYPE 2 DIABETES MELLITUS
     Dosage: 5 UG,2/D, SUBCUTANEOUS
     Route: 058
     Dates: start: 20070809, end: 20070811
  2. AMARYL [Concomitant]
  3. AVALIDE [Concomitant]
  4. CRESTOR [Concomitant]
  5. AMBIEN [Concomitant]
  6. PRANDIN/USA/ (REPAGLINIDE) [Concomitant]

REACTIONS (3)
  - CHEST PAIN [None]
  - HERPES ZOSTER [None]
  - MUSCULOSKELETAL CHEST PAIN [None]
